FAERS Safety Report 5250344-9 (Version None)
Quarter: 2007Q1

REPORT INFORMATION
  Report Type: 
  Country: None (occurrence: None)
  Receive Date: 20070228
  Receipt Date: 20060330
  Transmission Date: 20070707
  Serious: No
  Sender: FDA-Public Use
  Company Number: US-GLAXOSMITHKLINE-A0599763A

PATIENT
  Age: 36 Year
  Sex: Female

DRUGS (7)
  1. LAMICTAL [Suspect]
     Indication: BIPOLAR DISORDER
     Dosage: 150MG PER DAY
     Route: 048
     Dates: start: 20051103, end: 20060319
  2. REMERON [Concomitant]
  3. LEXAPRO [Concomitant]
  4. LITHIUM CARBONATE [Concomitant]
  5. CLEOCIN HYDROCHLORIDE [Concomitant]
  6. ZITHROMAX [Concomitant]
  7. LEVAQUIN [Concomitant]

REACTIONS (3)
  - NASOPHARYNGITIS [None]
  - PHARYNGOLARYNGEAL PAIN [None]
  - RASH [None]
